FAERS Safety Report 7989777 (Version 2)
Quarter: 2013Q4

REPORT INFORMATION
  Report Type: Spontaneous
  Country: US (occurrence: None)
  Receive Date: 20110526
  Receipt Date: 20131009
  Transmission Date: 20140711
  Serious: Yes (Hospitalization)
  Sender: FDA-Public Use
  Company Number: CIP11000556

PATIENT
  Age: 74 Year
  Sex: Female

DRUGS (27)
  1. ACTONEL [Suspect]
     Dosage: 75 MG TWO CONSECUTIVE DAYS MONTHLY, ORAL
     Route: 048
     Dates: start: 20081220, end: 20090402
  2. ACTONEL [Suspect]
     Dosage: 35 MG ONCE WEEKLY, ORAL
     Route: 048
     Dates: start: 20060928, end: 20080724
  3. FOSAMAX [Suspect]
     Indication: OSTEOPOROSIS
     Dosage: 70 MG ONCE WEEKLY, ORAL
     Route: 048
     Dates: end: 20100415
  4. FOSAMAX D [Suspect]
     Dosage: UNKNOWN, ORAL
     Route: 048
     Dates: start: 20090402
  5. KLONOPIN (CLONAXEPAM) [Concomitant]
  6. LIPITOR [Concomitant]
  7. LOPRESSOR [Concomitant]
  8. MOBIC [Concomitant]
  9. TOPROL XL [Concomitant]
  10. ADVAIR HFA [Concomitant]
  11. LISINOPRIL (LISINOPRIL) [Concomitant]
  12. NABUMETONE (RELAFEN) [Concomitant]
  13. HUMIBID DM (DEXTROMETHOPRPHAN HYDROBROMIDE, GUAIFENESIN) [Concomitant]
  14. ZITHROMAX (VARICELLA VIRUS VACCINE, LIVE) [Concomitant]
  15. ZOCOR [Concomitant]
  16. NIACIN [Concomitant]
  17. DOXYCYCLINE HYCLATE (DOXYCYCLINE HYCLATE) [Concomitant]
  18. TESSALON [Concomitant]
  19. BEXTRA /01401501/ (VALDECOXIB) [Concomitant]
  20. VITAMIN E /00110501/ (TOCOPHEROL) [Concomitant]
  21. GLUCOSAMINE (GLUCOSAMINE) [Concomitant]
  22. HYDROCHLOROTHIAZIDE (HYDROCHLOROTHIAZIDE) [Concomitant]
  23. IBUPROFEN (IBUPROFEN) [Concomitant]
  24. MULTIVITAMIN /00097801/ (ASCORBIC ACID, CALCIUM PANTOTHENATE, ERGOCALCIFEROL, NICOTINAMIDE, PYRIDOXI [Concomitant]
  25. CITRAL(CALCIUM CITRATE) [Concomitant]
  26. VYTORIN [Concomitant]
  27. ALENDRONATE SODIUM (ALENDRONATE SODIUM) (ALENDRONATE SODIUM) [Suspect]
     Dosage: 70 MG, 1/WEEK, ORAL
     Route: 048
     Dates: start: 20080911, end: 20100126

REACTIONS (10)
  - Fracture displacement [None]
  - Fall [None]
  - Arthralgia [None]
  - Bursitis [None]
  - Fracture delayed union [None]
  - Pain in extremity [None]
  - Fracture nonunion [None]
  - Stress fracture [None]
  - Therapeutic response decreased [None]
  - Femur fracture [None]
